FAERS Safety Report 19281240 (Version 1)
Quarter: 2021Q2

REPORT INFORMATION
  Report Type: Report from Study
  Country: FR (occurrence: FR)
  Receive Date: 20210521
  Receipt Date: 20210521
  Transmission Date: 20210717
  Serious: Yes (Hospitalization, Other)
  Sender: FDA-Public Use
  Company Number: FR-AMGEN-FRACT2021076957

PATIENT
  Age: 44 Year
  Sex: Male
  Weight: 74 kg

DRUGS (14)
  1. ETANERCEPT [Suspect]
     Active Substance: ETANERCEPT
     Dosage: 100 MG, WEEKLY
     Route: 058
     Dates: start: 20110303, end: 2011
  2. ETANERCEPT [Suspect]
     Active Substance: ETANERCEPT
     Dosage: 50 MG, WEEKLY
     Route: 058
     Dates: start: 201109
  3. ETANERCEPT [Suspect]
     Active Substance: ETANERCEPT
     Dosage: 100 MG, WEEKLY
     Route: 058
     Dates: start: 20130919
  4. ETANERCEPT [Suspect]
     Active Substance: ETANERCEPT
     Dosage: 50 MG EVERY 2 WEEKS
     Route: 058
     Dates: start: 20080925
  5. ETANERCEPT [Suspect]
     Active Substance: ETANERCEPT
     Dosage: 100 MG, WEEKLY
     Route: 058
     Dates: start: 20090709, end: 2009
  6. METHOTREXATE SODIUM. [Suspect]
     Active Substance: METHOTREXATE SODIUM
     Dosage: 15 MG, WEEKLY
     Route: 048
     Dates: start: 20070705
  7. ETANERCEPT [Suspect]
     Active Substance: ETANERCEPT
     Dosage: 100 MG, WEEKLY
     Route: 058
     Dates: start: 20140717
  8. ETANERCEPT [Suspect]
     Active Substance: ETANERCEPT
     Dosage: 100 MG, WEEKLY
     Route: 058
     Dates: start: 20170126
  9. AMLOR [Concomitant]
     Active Substance: AMLODIPINE BESYLATE
     Indication: HYPERTENSION
     Dosage: UNK
     Route: 065
     Dates: start: 20201208
  10. ETANERCEPT [Suspect]
     Active Substance: ETANERCEPT
     Indication: PSORIASIS
     Dosage: 50 MILLIGRAM, QWK
     Route: 058
     Dates: start: 20080528, end: 2008
  11. METHOTREXATE SODIUM. [Suspect]
     Active Substance: METHOTREXATE SODIUM
     Indication: PSORIASIS
     Dosage: 10 MG, WEEKLY
     Route: 048
     Dates: start: 200601, end: 2006
  12. METHOTREXATE SODIUM. [Suspect]
     Active Substance: METHOTREXATE SODIUM
     Dosage: 20 MG, WEEKLY
     Route: 048
     Dates: start: 20061130
  13. HUMIRA [Suspect]
     Active Substance: ADALIMUMAB
     Indication: PSORIASIS
     Dosage: 40 MG, WEEKLY
     Route: 058
     Dates: start: 20171102
  14. ETANERCEPT [Suspect]
     Active Substance: ETANERCEPT
     Dosage: 50 MG, WEEKLY
     Route: 058
     Dates: start: 20091203

REACTIONS (4)
  - Hypertension [Not Recovered/Not Resolved]
  - Steroid diabetes [Recovering/Resolving]
  - COVID-19 [Recovered/Resolved]
  - Sarcoidosis [Recovered/Resolved with Sequelae]

NARRATIVE: CASE EVENT DATE: 2020
